FAERS Safety Report 4905842-1 (Version None)
Quarter: 2006Q1

REPORT INFORMATION
  Report Type: 
  Country: None (occurrence: None)
  Receive Date: 20060113
  Receipt Date: 20050920
  Transmission Date: 20060701
  Serious: No
  Sender: FDA-Public Use
  Company Number: 2005SP002753

PATIENT
  Age: 43 Year
  Sex: Female
  Weight: 54.4316 kg

DRUGS (6)
  1. LUNESTA [Suspect]
     Indication: INITIAL INSOMNIA
     Dosage: 2 MG; 4 MG: HS; ORAL
     Route: 048
     Dates: start: 20050101, end: 20050101
  2. LUNESTA [Suspect]
     Indication: INITIAL INSOMNIA
     Dosage: 2 MG; 4 MG: HS; ORAL
     Route: 048
     Dates: start: 20050101, end: 20050912
  3. LEXAPRO [Concomitant]
  4. SEROQUEL [Concomitant]
  5. BUSPAR [Concomitant]
  6. KLONOPIN [Concomitant]

REACTIONS (3)
  - DRUG INEFFECTIVE [None]
  - INSOMNIA [None]
  - PALPITATIONS [None]
